FAERS Safety Report 6478377-5 (Version None)
Quarter: 2009Q4

REPORT INFORMATION
  Report Type: 
  Country: None (occurrence: None)
  Receive Date: 20091207
  Receipt Date: 20091204
  Transmission Date: 20100525
  Serious: Yes (Other)
  Sender: FDA-Public Use
  Company Number: GB-TEVA-217056ISR

PATIENT
  Sex: Female
  Weight: 60 kg

DRUGS (2)
  1. PAMIDRONIC ACID [Suspect]
     Indication: BONE LESION
  2. PAMIDRONIC ACID [Suspect]
     Indication: PAIN

REACTIONS (1)
  - IMPAIRED HEALING [None]
